FAERS Safety Report 4834603-7 (Version None)
Quarter: 2005Q4

REPORT INFORMATION
  Report Type: 
  Country: None (occurrence: None)
  Receive Date: 20051122
  Receipt Date: 20050531
  Transmission Date: 20060501
  Serious: Yes (Death)
  Sender: FDA-Public Use
  Company Number: CA-GLAXOSMITHKLINE-A0564897A

PATIENT
  Age: 16 Year
  Sex: Male
  Weight: 106.8 kg

DRUGS (3)
  1. PAROXETINE HCL [Suspect]
     Indication: DRUG USE FOR UNKNOWN INDICATION
     Dosage: 30MG PER DAY
     Route: 048
     Dates: end: 20040401
  2. MARIJUANA [Concomitant]
  3. RISPERDAL [Concomitant]

REACTIONS (2)
  - COMPLETED SUICIDE [None]
  - TOXICOLOGIC TEST ABNORMAL [None]
